FAERS Safety Report 4390266-9 (Version None)
Quarter: 2004Q3

REPORT INFORMATION
  Report Type: 
  Country: None (occurrence: None)
  Receive Date: 20040706
  Receipt Date: 20040618
  Transmission Date: 20050211
  Serious: Yes (Hospitalization)
  Sender: FDA-Public Use
  Company Number: JP-ROCHE-371470

PATIENT
  Age: 64 Year
  Sex: Male
  Weight: 64.4 kg

DRUGS (2)
  1. PEG-INTERFERON ALFA 2A (RO 25-8310) [Suspect]
     Indication: HEPATITIS C
     Route: 058
     Dates: start: 20040426
  2. RESTAMIN [Concomitant]
     Dates: start: 20040528

REACTIONS (2)
  - GASTRITIS [None]
  - STOMACH DISCOMFORT [None]
